FAERS Safety Report 10744165 (Version 2)
Quarter: 2015Q3

REPORT INFORMATION
  Report Type: Spontaneous
  Country: US (occurrence: US)
  Receive Date: 20150128
  Receipt Date: 20150927
  Transmission Date: 20151125
  Serious: Yes (Hospitalization)
  Sender: FDA-Public Use
  Company Number: US-AMGEN-USASP2015006849

PATIENT
  Age: 10 Year
  Sex: Female
  Weight: 34.8 kg

DRUGS (2)
  1. ENBREL [Suspect]
     Active Substance: ETANERCEPT
     Indication: JUVENILE IDIOPATHIC ARTHRITIS
     Dosage: 25 MG, QWK
     Route: 058
     Dates: start: 20110620, end: 201407
  2. METHOTREXATE [Concomitant]
     Active Substance: METHOTREXATE
     Dosage: 17.5 MG, QWK
     Route: 058
     Dates: start: 20110207, end: 20120624

REACTIONS (1)
  - Bone abscess [Recovered/Resolved]

NARRATIVE: CASE EVENT DATE: 20140715
